FAERS Safety Report 7684835-8 (Version None)
Quarter: 2011Q3

REPORT INFORMATION
  Report Type: 
  Country: None (occurrence: None)
  Receive Date: 20110816
  Receipt Date: 20110804
  Transmission Date: 20111222
  Serious: No
  Sender: FDA-Public Use
  Company Number: US-JNJFOC-20080700663

PATIENT
  Sex: Male
  Weight: 113.4 kg

DRUGS (8)
  1. LITHIUM [Concomitant]
     Indication: BIPOLAR DISORDER
     Route: 048
  2. ATIVAN [Concomitant]
     Indication: BIPOLAR DISORDER
     Route: 048
  3. SEROQUEL [Concomitant]
     Indication: BIPOLAR DISORDER
     Route: 065
  4. PERCOCET [Concomitant]
     Indication: PAIN
     Dosage: 10/325 MG
     Route: 048
     Dates: start: 20020101
  5. SKELAXIN [Concomitant]
     Indication: PAIN
     Route: 048
  6. DURAGESIC-100 [Suspect]
     Indication: PAIN
     Route: 062
     Dates: start: 20020101
  7. CELEBREX [Concomitant]
     Indication: PAIN
     Route: 065
  8. ALLERGY MEDICATIONS UNSPECIFIED [Concomitant]
     Indication: PRODUCT USED FOR UNKNOWN INDICATION
     Route: 065

REACTIONS (5)
  - MEMORY IMPAIRMENT [None]
  - APPLICATION SITE EXFOLIATION [None]
  - SUNBURN [None]
  - ILL-DEFINED DISORDER [None]
  - INAPPROPRIATE SCHEDULE OF DRUG ADMINISTRATION [None]
